FAERS Safety Report 15591140 (Version 2)
Quarter: 2021Q1

REPORT INFORMATION
  Report Type: Spontaneous
  Country: PH (occurrence: PH)
  Receive Date: 20181106
  Receipt Date: 20210204
  Transmission Date: 20210419
  Serious: Yes (Life-Threatening, Other)
  Sender: FDA-Public Use
  Company Number: PH-LUPIN PHARMACEUTICALS INC.-2018-07670

PATIENT
  Age: 36 Year
  Sex: Female

DRUGS (10)
  1. LINEZOLID. [Suspect]
     Active Substance: LINEZOLID
     Indication: CARDIAC PSEUDOANEURYSM
     Dosage: UNK
     Route: 065
  2. LINEZOLID. [Interacting]
     Active Substance: LINEZOLID
     Indication: PNEUMONIA
  3. ISONIAZID. [Interacting]
     Active Substance: ISONIAZID
     Indication: PNEUMONIA
  4. PIPERACILLIN AND TAZOBACTAM [Interacting]
     Active Substance: PIPERACILLIN SODIUM\TAZOBACTAM SODIUM
     Indication: PNEUMONIA
     Dosage: UNK
     Route: 065
  5. TRAMADOL. [Interacting]
     Active Substance: TRAMADOL
     Indication: CARDIAC PSEUDOANEURYSM
     Dosage: UNK
     Route: 065
  6. TRAMADOL. [Interacting]
     Active Substance: TRAMADOL
     Indication: PNEUMONIA
  7. PIPERACILLIN AND TAZOBACTAM [Interacting]
     Active Substance: PIPERACILLIN SODIUM\TAZOBACTAM SODIUM
     Indication: CARDIAC PSEUDOANEURYSM
  8. VANCOMYCIN [Interacting]
     Active Substance: VANCOMYCIN
     Indication: PNEUMONIA
     Dosage: UNK
     Route: 065
  9. VANCOMYCIN [Interacting]
     Active Substance: VANCOMYCIN
     Indication: CARDIAC PSEUDOANEURYSM
  10. ISONIAZID. [Interacting]
     Active Substance: ISONIAZID
     Indication: CARDIAC PSEUDOANEURYSM
     Dosage: UNK
     Route: 065

REACTIONS (4)
  - Chest pain [Recovering/Resolving]
  - Rhabdomyolysis [Recovering/Resolving]
  - Drug interaction [Unknown]
  - Serotonin syndrome [Recovering/Resolving]
